FAERS Safety Report 6424224-7 (Version None)
Quarter: 2009Q4

REPORT INFORMATION
  Report Type: 
  Country: None (occurrence: None)
  Receive Date: 20091102
  Receipt Date: 20091021
  Transmission Date: 20100525
  Serious: Yes (Life-Threatening, Hospitalization, Other)
  Sender: FDA-Public Use
  Company Number: JP-PFIZER INC-2009263066

PATIENT
  Age: 74 Year
  Sex: Female
  Weight: 64 kg

DRUGS (9)
  1. SUNITINIB MALATE [Suspect]
     Indication: RENAL CELL CARCINOMA
     Dosage: 50 MG, 1X/DAY
     Route: 048
     Dates: start: 20090519
  2. ADALAT CC [Concomitant]
     Route: 048
  3. VALSARTAN [Concomitant]
     Route: 048
  4. GASTER OD [Concomitant]
     Route: 048
  5. DEPAS [Concomitant]
     Route: 048
  6. MAG-LAX [Concomitant]
     Route: 048
  7. PURSENNID [Concomitant]
     Route: 048
  8. MYSLEE [Concomitant]
     Route: 048
  9. ALLOPURINOL [Concomitant]
     Route: 048
     Dates: start: 20090526, end: 20090602

REACTIONS (2)
  - HEPATIC FUNCTION ABNORMAL [None]
  - PLATELET COUNT DECREASED [None]
